FAERS Safety Report 10417370 (Version 1)
Quarter: 2014Q3

REPORT INFORMATION
  Report Type: Spontaneous
  Country: JP (occurrence: JP)
  Receive Date: 20140829
  Receipt Date: 20140829
  Transmission Date: 20150326
  Serious: Yes (Other)
  Sender: FDA-Public Use
  Company Number: PHHY2014JP106223

PATIENT
  Age: 56 Year
  Sex: Male

DRUGS (13)
  1. MEROPENEM. [Suspect]
     Active Substance: MEROPENEM
     Indication: SPINAL CORD INFECTION
  2. CIPROFLOXACIN. [Suspect]
     Active Substance: CIPROFLOXACIN
  3. CEFPIROME [Suspect]
     Active Substance: CEFPIROME
     Indication: SPINAL CORD INFECTION
  4. CLINDAMYCIN [Suspect]
     Active Substance: CLINDAMYCIN\CLINDAMYCIN PHOSPHATE
     Indication: SPINAL CORD INFECTION
  5. CEFOZOPRAN [Suspect]
     Active Substance: CEFOZOPRAN
     Indication: SPINAL CORD INFECTION
  6. FLOMOXEF [Suspect]
     Active Substance: FLOMOXEF
     Indication: SPINAL CORD INFECTION
  7. VANCOMYCIN [Suspect]
     Active Substance: VANCOMYCIN
  8. FLUCONAZOLE. [Suspect]
     Active Substance: FLUCONAZOLE
     Indication: SPINAL CORD INFECTION
  9. TEICOPLANIN [Suspect]
     Active Substance: TEICOPLANIN
  10. CEFEPIME [Suspect]
     Active Substance: CEFEPIME\CEFEPIME HYDROCHLORIDE
     Indication: SPINAL CORD INFECTION
  11. ANAESTHETICS [Concomitant]
     Active Substance: UNSPECIFIED INGREDIENT
     Route: 061
  12. ANAESTHETICS [Concomitant]
     Active Substance: UNSPECIFIED INGREDIENT
     Route: 042
  13. AMPHOTERICIN B. [Suspect]
     Active Substance: AMPHOTERICIN B
     Indication: SPINAL CORD INFECTION

REACTIONS (1)
  - Candida infection [Recovered/Resolved]
